FAERS Safety Report 16697087 (Version 6)
Quarter: 2019Q4

REPORT INFORMATION
  Report Type: Spontaneous
  Country: US (occurrence: US)
  Receive Date: 20190813
  Receipt Date: 20191204
  Transmission Date: 20200122
  Serious: No
  Sender: FDA-Public Use
  Company Number: US-PFIZER INC-2019345991

PATIENT
  Age: 63 Year
  Sex: Female

DRUGS (1)
  1. OXAPROZIN. [Suspect]
     Active Substance: OXAPROZIN
     Indication: ARTHRITIS
     Dosage: 1200 MG, DAILY (600MG ORALLY TAKE TWO DAILY WITH MEALS)
     Route: 048
     Dates: start: 20020612, end: 20020911

REACTIONS (7)
  - Chills [Unknown]
  - Nausea [Unknown]
  - Pain [Unknown]
  - Heart rate increased [Unknown]
  - Musculoskeletal stiffness [Unknown]
  - Drug intolerance [Unknown]
  - Hot flush [Unknown]

NARRATIVE: CASE EVENT DATE: 2002
